FAERS Safety Report 14505724 (Version 1)
Quarter: 2018Q1

REPORT INFORMATION
  Report Type: Spontaneous
  Country: US (occurrence: US)
  Receive Date: 20180207
  Receipt Date: 20180207
  Transmission Date: 20180509
  Serious: Yes (Life-Threatening, Hospitalization, Disabling)
  Sender: FDA-Public Use
  Company Number: None

PATIENT
  Age: 54 Year
  Sex: Male
  Weight: 103.5 kg

DRUGS (10)
  1. LOSARTUM [Concomitant]
  2. HYDROCHLORAZIDE [Concomitant]
  3. LANTUS SOLARSTAR PEN [Concomitant]
  4. IRON [Concomitant]
     Active Substance: IRON
  5. CLOPIDOGREL [Suspect]
     Active Substance: CLOPIDOGREL BISULFATE
     Indication: STENT PLACEMENT
     Dosage: ?          QUANTITY:30 TABLET(S);?
     Route: 048
     Dates: start: 20171226, end: 20180126
  6. METROPOLOL [Concomitant]
     Active Substance: METOPROLOL
  7. METFORMIN [Concomitant]
     Active Substance: METFORMIN HYDROCHLORIDE
  8. ASPIRIN. [Concomitant]
     Active Substance: ASPIRIN
  9. AMLODIPINE [Concomitant]
     Active Substance: AMLODIPINE BESYLATE
  10. OMERPRAZOLE [Concomitant]
     Active Substance: OMEPRAZOLE

REACTIONS (5)
  - Chest pain [None]
  - Coronary artery occlusion [None]
  - Drug dispensing error [None]
  - Wrong drug administered [None]
  - Liver injury [None]

NARRATIVE: CASE EVENT DATE: 20180126
